FAERS Safety Report 16667382 (Version 1)
Quarter: 2019Q3

REPORT INFORMATION
  Report Type: Spontaneous
  Country: US (occurrence: US)
  Receive Date: 20190805
  Receipt Date: 20190805
  Transmission Date: 20191004
  Serious: No
  Sender: FDA-Public Use
  Company Number: US-AMGEN-USASP2019122911

PATIENT
  Age: 71 Year
  Sex: Male
  Weight: 104.31 kg

DRUGS (5)
  1. PROCRIT [Suspect]
     Active Substance: ERYTHROPOIETIN
     Indication: RED BLOOD CELL COUNT DECREASED
     Dosage: UNK UNK, QWK
     Route: 065
     Dates: start: 20190724
  2. FUROSEMIDE. [Concomitant]
     Active Substance: FUROSEMIDE
     Dosage: UNK
  3. VITAMIN C [Concomitant]
     Active Substance: ASCORBIC ACID
     Dosage: UNK
     Route: 042
  4. METOPROLOL. [Concomitant]
     Active Substance: METOPROLOL
     Indication: CARDIAC DISORDER
     Dosage: UNK
  5. LECITHIN [Concomitant]
     Active Substance: LECITHIN
     Indication: PROPHYLAXIS
     Dosage: UNK (PLANT BASED)

REACTIONS (2)
  - Fatigue [Not Recovered/Not Resolved]
  - Flatulence [Not Recovered/Not Resolved]

NARRATIVE: CASE EVENT DATE: 20190724
